FAERS Safety Report 24750447 (Version 1)
Quarter: 2024Q4

REPORT INFORMATION
  Report Type: Report from Study
  Country: US (occurrence: US)
  Receive Date: 20241218
  Receipt Date: 20241218
  Transmission Date: 20250114
  Serious: Yes (Death, Other)
  Sender: JAZZ
  Company Number: US-JAZZ PHARMACEUTICALS-2024-US-023082

PATIENT
  Age: 60 Year
  Sex: Male

DRUGS (1)
  1. LURBINECTEDIN [Suspect]
     Active Substance: LURBINECTEDIN
     Indication: Product used for unknown indication
     Dosage: UNK
     Dates: end: 20241203

REACTIONS (2)
  - Death [Fatal]
  - Gastrointestinal inflammation [Unknown]

NARRATIVE: CASE EVENT DATE: 20241201
